FAERS Safety Report 5838640-5 (Version None)
Quarter: 2008Q3

REPORT INFORMATION
  Report Type: 
  Country: None (occurrence: None)
  Receive Date: 20080808
  Receipt Date: 20080711
  Transmission Date: 20090109
  Serious: No
  Sender: FDA-Public Use
  Company Number: A0737225A

PATIENT
  Age: 39 Year
  Sex: Female

DRUGS (3)
  1. ALTABAX [Suspect]
     Indication: SKIN INFECTION
     Dosage: 1APP TWICE PER DAY
     Route: 061
     Dates: start: 20080501
  2. TETRACYCLINE [Concomitant]
  3. BACTRIM [Concomitant]

REACTIONS (5)
  - BLISTER [None]
  - ERYTHEMA [None]
  - FUNGAL INFECTION [None]
  - HYPERSENSITIVITY [None]
  - INFLAMMATION [None]
